FAERS Safety Report 5859411-X (Version None)
Quarter: 2008Q3

REPORT INFORMATION
  Report Type: 
  Country: None (occurrence: None)
  Receive Date: 20080826
  Receipt Date: 20080826
  Transmission Date: 20090109
  Serious: Yes (Hospitalization, Disabling, Other)
  Sender: FDA-Public Use
  Company Number: None

PATIENT
  Age: 74 Year
  Sex: Male
  Weight: 90.7194 kg

DRUGS (2)
  1. ZOCOR [Suspect]
     Indication: BLOOD CHOLESTEROL
     Dosage: ONE TABLET DAILY PO
     Route: 048
     Dates: start: 20080512, end: 20080808
  2. AMIODARONE HCL [Suspect]
     Indication: HEART RATE ABNORMAL
     Dosage: ONE TABLET DAILY PO
     Route: 048
     Dates: start: 20080512, end: 20080808

REACTIONS (2)
  - ABASIA [None]
  - RHABDOMYOLYSIS [None]
